FAERS Safety Report 13455946 (Version 1)
Quarter: 2017Q2

REPORT INFORMATION
  Report Type: Spontaneous
  Country: US (occurrence: US)
  Receive Date: 20170419
  Receipt Date: 20170419
  Transmission Date: 20170830
  Serious: No
  Sender: FDA-Public Use
  Company Number: US-PFIZER INC-2017166131

PATIENT
  Age: 60 Year
  Sex: Male

DRUGS (1)
  1. SUTENT [Suspect]
     Active Substance: SUNITINIB MALATE
     Dosage: 50 MG, CYCLIC [1 CAPSULE BY MOUTH DAILY FOR 2 WEEKS ON AND 1 WEEK OFF]
     Route: 048
     Dates: start: 201703

REACTIONS (2)
  - Pain in extremity [Unknown]
  - Oral mucosal blistering [Unknown]
